FAERS Safety Report 7685619-7 (Version None)
Quarter: 2011Q3

REPORT INFORMATION
  Report Type: 
  Country: None (occurrence: None)
  Receive Date: 20110816
  Receipt Date: 20110805
  Transmission Date: 20111222
  Serious: Yes (Other)
  Sender: FDA-Public Use
  Company Number: PHHY2011TR72308

PATIENT
  Age: 42 Year
  Sex: Female

DRUGS (2)
  1. METHYLPREDNISOLONE [Suspect]
     Indication: BACK PAIN
     Dosage: 80 MG, UNK
     Route: 008
  2. LIDOCAINE [Concomitant]
     Indication: BACK PAIN
     Route: 008

REACTIONS (1)
  - UTERINE HAEMORRHAGE [None]
